FAERS Safety Report 6467017-7 (Version None)
Quarter: 2009Q4

REPORT INFORMATION
  Report Type: 
  Country: None (occurrence: None)
  Receive Date: 20091127
  Receipt Date: 20091116
  Transmission Date: 20100525
  Serious: Yes (Death)
  Sender: FDA-Public Use
  Company Number: 2009AC000419

PATIENT
  Age: 76 Year
  Sex: Female

DRUGS (4)
  1. DIGOXIN [Suspect]
     Dosage: 0.25 MG; WD; PO
     Route: 048
     Dates: start: 20071201, end: 20080401
  2. DIGOXIN [Concomitant]
     Dosage: 0.125 MG; QD
     Dates: start: 20080401
  3. ALBUTEROL [Concomitant]
  4. WARFARIN SODIUM [Concomitant]

REACTIONS (8)
  - DYSPNOEA [None]
  - EMOTIONAL DISTRESS [None]
  - FLUSHING [None]
  - HEART RATE INCREASED [None]
  - HYPERHIDROSIS [None]
  - MULTIPLE INJURIES [None]
  - PAIN [None]
  - RENAL FAILURE CHRONIC [None]
